FAERS Safety Report 23618881 (Version 4)
Quarter: 2024Q3

REPORT INFORMATION
  Report Type: Spontaneous
  Country: US (occurrence: US)
  Receive Date: 20240311
  Receipt Date: 20240820
  Transmission Date: 20241017
  Serious: Yes (Hospitalization, Other)
  Sender: AMGEN
  Company Number: US-AMGEN-USASP2024046000

PATIENT
  Age: 14 Year
  Sex: Male

DRUGS (11)
  1. BLINATUMOMAB [Suspect]
     Active Substance: BLINATUMOMAB
     Indication: Acute lymphocytic leukaemia
     Dosage: 5 MICROGRAM/SQ. METER, ADMINISTERED OVER 24 H ON DAYS 1-7
     Route: 042
  2. BLINATUMOMAB [Suspect]
     Active Substance: BLINATUMOMAB
     Dosage: 15 MICROGRAM/SQ. METER, DAYS 8-28
     Route: 042
  3. BLINATUMOMAB [Suspect]
     Active Substance: BLINATUMOMAB
     Dosage: 15 MICROGRAM/SQ. METER,CONTINUOUS INFUSION X 28 DAYS, DAY 167 THROUGH DAY 195
     Route: 042
  4. PREDNISONE [Suspect]
     Active Substance: PREDNISONE
     Indication: Acute lymphocytic leukaemia
     Dosage: 30 MILLIGRAM/SQ. METER, BID, DAYS 1-14
     Route: 065
  5. PREDNISONE [Suspect]
     Active Substance: PREDNISONE
     Dosage: 30 MILLIGRAM/SQ. METER, BID, DAYS 15-28
     Route: 065
  6. ROMIPLOSTIM [Suspect]
     Active Substance: ROMIPLOSTIM
     Indication: Immune thrombocytopenia
     Dosage: UNK
     Route: 065
  7. RITUXIMAB [Suspect]
     Active Substance: RITUXIMAB
     Indication: Immune thrombocytopenia
     Dosage: 375 MILLIGRAM/SQ. METER
     Route: 042
  8. ELTROMBOPAG [Concomitant]
     Active Substance: ELTROMBOPAG
     Indication: Immune thrombocytopenia
     Dosage: UNK
     Route: 065
  9. IMMUNE GLOBULIN [Concomitant]
     Indication: Immune thrombocytopenia
     Dosage: HIGH DOSE
     Route: 042
  10. METHYLPREDNISOLONE [Concomitant]
     Active Substance: METHYLPREDNISOLONE
     Indication: Immune thrombocytopenia
     Dosage: UNK
     Route: 065
  11. DECITABINE [Concomitant]
     Active Substance: DECITABINE
     Indication: Immune thrombocytopenia
     Dosage: UNK
     Route: 065

REACTIONS (11)
  - Immune thrombocytopenia [Unknown]
  - Graft versus host disease in liver [Unknown]
  - Pancytopenia [Unknown]
  - Transplant dysfunction [Unknown]
  - Enterobacter bacteraemia [Unknown]
  - Adenovirus infection [Unknown]
  - Viraemia [Unknown]
  - Treatment failure [Unknown]
  - Drug ineffective for unapproved indication [Unknown]
  - Off label use [Unknown]
  - Serum ferritin increased [Unknown]
